FAERS Safety Report 14364804 (Version 1)
Quarter: 2018Q1

REPORT INFORMATION
  Report Type: Spontaneous
  Country: US (occurrence: US)
  Receive Date: 20180107
  Receipt Date: 20180107
  Transmission Date: 20180509
  Serious: Yes (Other)
  Sender: FDA-Public Use
  Company Number: None

PATIENT
  Age: 37 Year
  Sex: Female
  Weight: 63 kg

DRUGS (1)
  1. CLINDAMYCIN/BPO 1.2-5 GEL [Suspect]
     Active Substance: BENZOYL PEROXIDE\CLINDAMYCIN PHOSPHATE
     Indication: ACNE
     Dosage: QUANTITY:1 APPLY EVERY MORNIN;?
     Route: 061
     Dates: start: 20180103, end: 20180107

REACTIONS (9)
  - Headache [None]
  - Erythema [None]
  - Swelling face [None]
  - Burning sensation [None]
  - Dyspnoea [None]
  - Nausea [None]
  - Eye swelling [None]
  - Skin wrinkling [None]
  - Dry eye [None]

NARRATIVE: CASE EVENT DATE: 20180107
